FAERS Safety Report 9362037 (Version 1)
Quarter: 2013Q2

REPORT INFORMATION
  Report Type: Spontaneous
  Country: US (occurrence: US)
  Receive Date: 20130621
  Receipt Date: 20130621
  Transmission Date: 20140414
  Serious: Yes (Other)
  Sender: FDA-Public Use
  Company Number: CHPA2013US010053

PATIENT
  Age: 72 Year
  Sex: Male

DRUGS (1)
  1. EXCEDRIN ES BACK + BODY [Suspect]
     Indication: ARTHRITIS
     Dosage: 2 DF, Q6H

REACTIONS (2)
  - Joint effusion [Not Recovered/Not Resolved]
  - Joint swelling [Not Recovered/Not Resolved]
